FAERS Safety Report 17587561 (Version 4)
Quarter: 2020Q2

REPORT INFORMATION
  Report Type: Report from Study
  Country: US (occurrence: US)
  Receive Date: 20200326
  Receipt Date: 20200527
  Transmission Date: 20200713
  Serious: Yes (Death, Hospitalization)
  Sender: FDA-Public Use
  Company Number: US-ACTELION-A-NJ2020-202544

PATIENT
  Age: 72 Year
  Sex: Male

DRUGS (2)
  1. VELETRI [Suspect]
     Active Substance: EPOPROSTENOL
     Indication: PULMONARY ARTERIAL HYPERTENSION
     Dosage: 27 NG/KG, PER MIN
     Route: 042
     Dates: start: 201911, end: 20200324
  2. OPSUMIT [Suspect]
     Active Substance: MACITENTAN
     Indication: PULMONARY ARTERIAL HYPERTENSION
     Dosage: 10 MG, QD
     Route: 048
     Dates: start: 202001

REACTIONS (8)
  - Catheter site erythema [Not Recovered/Not Resolved]
  - Death [Fatal]
  - Pruritus [Unknown]
  - Catheter site irritation [Not Recovered/Not Resolved]
  - Application site rash [Unknown]
  - Hospitalisation [Not Recovered/Not Resolved]
  - Dry skin [Unknown]
  - Catheter site pruritus [Not Recovered/Not Resolved]

NARRATIVE: CASE EVENT DATE: 20200324
